FAERS Safety Report 6073097-3 (Version None)
Quarter: 2009Q1

REPORT INFORMATION
  Report Type: 
  Country: None (occurrence: None)
  Receive Date: 20090211
  Receipt Date: 20090203
  Transmission Date: 20090719
  Serious: Yes (Other)
  Sender: FDA-Public Use
  Company Number: US-JNJFOC-20090201264

PATIENT
  Sex: Male

DRUGS (1)
  1. INFANTS MYLICON NON-STAINING FORMULA [Suspect]
     Indication: DRUG USE FOR UNKNOWN INDICATION
     Dosage: 4-5 TIMES DAILY FOR 2 WEEKS

REACTIONS (5)
  - CRYING [None]
  - DRUG INEFFECTIVE [None]
  - IRRITABILITY [None]
  - PAIN [None]
  - PRODUCT QUALITY ISSUE [None]
